FAERS Safety Report 6915436-4 (Version None)
Quarter: 2010Q3

REPORT INFORMATION
  Report Type: 
  Country: None (occurrence: None)
  Receive Date: 20100806
  Receipt Date: 20100806
  Transmission Date: 20110219
  Serious: Yes (Life-Threatening, Hospitalization)
  Sender: FDA-Public Use
  Company Number: None

PATIENT
  Age: 72 Year
  Sex: Male
  Weight: 88.4 kg

DRUGS (2)
  1. SULFAMETHOXAZOLE AND TRIMETHOPRIM [Suspect]
     Indication: INFECTION PROPHYLAXIS
     Dosage: 800/160 MG BID PO
     Route: 048
     Dates: start: 20100727, end: 20100729
  2. SULFAMETHOXAZOLE AND TRIMETHOPRIM [Suspect]
     Indication: SURGERY
     Dosage: 800/160 MG BID PO
     Route: 048
     Dates: start: 20100727, end: 20100729

REACTIONS (3)
  - STEVENS-JOHNSON SYNDROME [None]
  - TOXIC EPIDERMAL NECROLYSIS [None]
  - VISUAL IMPAIRMENT [None]
